FAERS Safety Report 6094689-1 (Version None)
Quarter: 2009Q1

REPORT INFORMATION
  Report Type: 
  Country: None (occurrence: None)
  Receive Date: 20090224
  Receipt Date: 20090209
  Transmission Date: 20090719
  Serious: Yes (Other)
  Sender: FDA-Public Use
  Company Number: JHP200900037

PATIENT
  Age: 47 Year

DRUGS (5)
  1. COLY-MYCIN M PARENTERAL (COLISTIN) INJECTION, 150MG [Suspect]
     Indication: URINARY TRACT INFECTION PSEUDOMONAL
     Dosage: 50 MG EVERY 8 HOURS (2.8 MG/KG/DAY), INTRAVENOUS; 75 MG EVERY 8 HOURS, INTRAVENOUS
     Route: 042
  2. ANTIBIOTICS () [Suspect]
     Indication: URINARY TRACT INFECTION PSEUDOMONAL
  3. GABAPENTIN [Suspect]
  4. BACLOFEN [Suspect]
  5. TIZANIDINE HCL [Suspect]

REACTIONS (6)
  - ANOREXIA [None]
  - DRUG INTERACTION [None]
  - NAUSEA [None]
  - NEPHROPATHY TOXIC [None]
  - NEUROTOXICITY [None]
  - PYREXIA [None]
